FAERS Safety Report 19908611 (Version 1)
Quarter: 2021Q4

REPORT INFORMATION
  Report Type: Report from Study
  Country: None (occurrence: US)
  Receive Date: 20211001
  Receipt Date: 20211001
  Transmission Date: 20220303
  Serious: No
  Sender: FDA-Public Use
  Company Number: US-AMARIN PHARMA, INC.-2020AMR000575

PATIENT
  Age: 61 Year
  Sex: Female

DRUGS (2)
  1. VASCEPA [Suspect]
     Active Substance: ICOSAPENT ETHYL
     Indication: Blood triglycerides increased
     Route: 048
     Dates: start: 20200601
  2. VASCEPA [Suspect]
     Active Substance: ICOSAPENT ETHYL
     Route: 048

REACTIONS (5)
  - Abdominal discomfort [Unknown]
  - Peripheral swelling [Unknown]
  - Prescribed underdose [Recovered/Resolved]
  - Intentional underdose [Unknown]
  - Product size issue [Unknown]

NARRATIVE: CASE EVENT DATE: 20200601
